FAERS Safety Report 7797523-4 (Version None)
Quarter: 2011Q4

REPORT INFORMATION
  Report Type: 
  Country: None (occurrence: None)
  Receive Date: 20111005
  Receipt Date: 20110929
  Transmission Date: 20120403
  Serious: Yes (Hospitalization, Other)
  Sender: FDA-Public Use
  Company Number: US-ABBOTT-11P-163-0860406-00

PATIENT
  Sex: Female
  Weight: 44.946 kg

DRUGS (2)
  1. HUMIRA [Suspect]
     Indication: PSORIASIS
     Route: 058
     Dates: start: 20080101, end: 20090301
  2. PRENATAL VITAMINS [Concomitant]
     Indication: SUPPLEMENTATION THERAPY

REACTIONS (12)
  - INTESTINAL ISCHAEMIA [None]
  - COLITIS ULCERATIVE [None]
  - PREMATURE RUPTURE OF MEMBRANES [None]
  - VOMITING [None]
  - PREMATURE LABOUR [None]
  - NAUSEA [None]
  - INTESTINAL OBSTRUCTION [None]
  - DYSPNOEA [None]
  - CROHN'S DISEASE [None]
  - ACQUIRED DIAPHRAGMATIC EVENTRATION [None]
  - PREMATURE DELIVERY [None]
  - INTESTINAL PERFORATION [None]
